FAERS Safety Report 10907465 (Version 1)
Quarter: 2015Q1

REPORT INFORMATION
  Report Type: Spontaneous
  Country: US (occurrence: None)
  Receive Date: 20150309
  Receipt Date: 20150309
  Transmission Date: 20150721
  Serious: Yes (Life-Threatening, Hospitalization, Disabling)
  Sender: FDA-Public Use
  Company Number: None

PATIENT
  Age: 41 Year
  Sex: Male
  Weight: 122.02 kg

DRUGS (3)
  1. LISINOPRIL. [Concomitant]
     Active Substance: LISINOPRIL
  2. PRILOSEC [Suspect]
     Active Substance: OMEPRAZOLE MAGNESIUM
     Indication: ABDOMINAL DISCOMFORT
     Route: 048
  3. MULTI VITAMIN [Concomitant]
     Active Substance: VITAMINS

REACTIONS (38)
  - Anxiety [None]
  - Hypertension [None]
  - Haematochezia [None]
  - Asthenia [None]
  - Spinal osteoarthritis [None]
  - Skin exfoliation [None]
  - Vision blurred [None]
  - Carpal tunnel syndrome [None]
  - Hypoaesthesia [None]
  - Panic attack [None]
  - Lymphadenopathy [None]
  - Aphasia [None]
  - Arthralgia [None]
  - Arthritis [None]
  - Amnesia [None]
  - Pruritus [None]
  - Tinnitus [None]
  - Abdominal discomfort [None]
  - Derealisation [None]
  - Rib fracture [None]
  - Dizziness [None]
  - Vertigo [None]
  - Multi-organ disorder [None]
  - Dyspepsia [None]
  - Temperature regulation disorder [None]
  - Chest pain [None]
  - Palpitations [None]
  - Renal pain [None]
  - Musculoskeletal stiffness [None]
  - Flushing [None]
  - Vitamin D decreased [None]
  - Intraocular pressure decreased [None]
  - Chemical injury [None]
  - Burning sensation [None]
  - Prostatomegaly [None]
  - Hand fracture [None]
  - Headache [None]
  - Impaired work ability [None]

NARRATIVE: CASE EVENT DATE: 20150304
